FAERS Safety Report 12325726 (Version 3)
Quarter: 2016Q2

REPORT INFORMATION
  Report Type: Spontaneous
  Country: DE (occurrence: DE)
  Receive Date: 20160503
  Receipt Date: 20160517
  Transmission Date: 20160815
  Serious: Yes (Other)
  Sender: FDA-Public Use
  Company Number: DE-AMGEN-DEUSP2016050427

PATIENT
  Age: 58 Year
  Sex: Male
  Weight: 96 kg

DRUGS (14)
  1. PANTOPRAZOL [Concomitant]
     Active Substance: PANTOPRAZOLE SODIUM
     Dosage: 40 UNK, QD
  2. ATOZET [Concomitant]
     Active Substance: ATORVASTATIN CALCIUM\EZETIMIBE
     Dosage: UNK (10/40) MG, QD, FTA
  3. REPATHA [Suspect]
     Active Substance: EVOLOCUMAB
     Indication: TYPE IIA HYPERLIPIDAEMIA
     Dosage: 140 MG, Q2WK
     Route: 030
     Dates: start: 201511, end: 201604
  4. CANDESARTAN [Concomitant]
     Active Substance: CANDESARTAN
     Dosage: 8 MG, QD
     Route: 048
  5. OMACOR [Concomitant]
     Active Substance: OMEGA-3-ACID ETHYL ESTERS
     Dosage: UNK UNK, BID, WKA
  6. TAVEGIL [Concomitant]
     Active Substance: CLEMASTINE FUMARATE
     Dosage: UNK UNK, BID
  7. DEKRISTOL [Concomitant]
     Active Substance: CHOLECALCIFEROL
     Dosage: 20000 UNK, QWK
     Route: 048
  8. TRAMAL [Concomitant]
     Active Substance: TRAMADOL
     Dosage: 50 MG, BID
  9. MIRTAZAPIN [Concomitant]
     Active Substance: MIRTAZAPINE
     Dosage: 15 MG, UNK, FTA
  10. ASPIRIN. [Concomitant]
     Active Substance: ASPIRIN
     Dosage: 100 UNK, UNK
     Route: 048
  11. SPIOLTO [Concomitant]
     Active Substance: OLODATEROL HYDROCHLORIDE\TIOTROPIUM BROMIDE MONOHYDRATE
     Dosage: 2.5 MUG, UNK, HUB, INL
     Route: 055
  12. NEBIVOLOL 1A PHARMA [Concomitant]
     Dosage: 5 MG, UNK (1 MORNING)
     Route: 048
  13. TORASEMID AAA-PHARMA [Concomitant]
     Dosage: 10 MG, QD
     Route: 048
  14. BEZAFIBRAT CT [Concomitant]
     Dosage: 200 MG, QD, FILM, FTA

REACTIONS (1)
  - Rash generalised [Recovering/Resolving]

NARRATIVE: CASE EVENT DATE: 201601
